FAERS Safety Report 19192056 (Version 1)
Quarter: 2021Q2

REPORT INFORMATION
  Report Type: Spontaneous
  Country: FR (occurrence: FR)
  Receive Date: 20210428
  Receipt Date: 20210428
  Transmission Date: 20210717
  Serious: Yes (Death)
  Sender: FDA-Public Use
  Company Number: FR-009507513-2104FRA007069

PATIENT
  Age: 67 Year
  Sex: Male

DRUGS (4)
  1. INLYTA [Suspect]
     Active Substance: AXITINIB
     Dosage: 5 MG, 2X/DAY
  2. PEMBROLIZUMAB. [Suspect]
     Active Substance: PEMBROLIZUMAB
     Indication: SARCOMATOID CARCINOMA
     Dosage: 400 MG EVERY 2 WEEKS
  3. PEMBROLIZUMAB. [Suspect]
     Active Substance: PEMBROLIZUMAB
     Dosage: 400 MG, WEEKLY
     Dates: start: 20201115
  4. INLYTA [Suspect]
     Active Substance: AXITINIB
     Indication: SARCOMATOID CARCINOMA
     Dosage: 10 MG, 2X/DAY
     Dates: start: 20201115

REACTIONS (2)
  - Off label use [Unknown]
  - Death [Fatal]
